FAERS Safety Report 5504830-4 (Version None)
Quarter: 2007Q4

REPORT INFORMATION
  Report Type: 
  Country: None (occurrence: None)
  Receive Date: 20071031
  Receipt Date: 20071023
  Transmission Date: 20080405
  Serious: Yes (Disabling)
  Sender: FDA-Public Use
  Company Number: OSCN-PR-0710S-0413

PATIENT
  Sex: Male

DRUGS (1)
  1. OMNISCAN [Suspect]
     Indication: ARTHRITIS INFECTIVE
     Dosage: NR, SINGLE DOSE, I.V.
     Route: 042
     Dates: start: 20040928, end: 20040928

REACTIONS (1)
  - NEPHROGENIC SYSTEMIC FIBROSIS [None]
